FAERS Safety Report 6696631-9 (Version None)
Quarter: 2010Q2

REPORT INFORMATION
  Report Type: 
  Country: None (occurrence: None)
  Receive Date: 20100426
  Receipt Date: 20100416
  Transmission Date: 20101027
  Serious: Yes (Hospitalization)
  Sender: FDA-Public Use
  Company Number: B0649354A

PATIENT
  Sex: Male

DRUGS (2)
  1. AUGMENTIN '125' [Suspect]
     Indication: DRUG USE FOR UNKNOWN INDICATION
     Route: 048
     Dates: start: 20100401, end: 20100403
  2. ATENOLOL [Concomitant]

REACTIONS (3)
  - PLEURAL EFFUSION [None]
  - RIB FRACTURE [None]
  - URTICARIA [None]
